FAERS Safety Report 24136057 (Version 2)
Quarter: 2024Q3

REPORT INFORMATION
  Report Type: Report from Study
  Country: TH (occurrence: TH)
  Receive Date: 20240725
  Receipt Date: 20240912
  Transmission Date: 20241017
  Serious: Yes (Other)
  Sender: Unknown Manufacturer
  Company Number: TH-BLUEPRINT MEDICINES CORPORATION-2024BUS003983

PATIENT

DRUGS (2)
  1. PRALSETINIB [Suspect]
     Active Substance: PRALSETINIB
     Indication: RET gene fusion positive
     Route: 065
  2. PRALSETINIB [Suspect]
     Active Substance: PRALSETINIB
     Indication: Non-small cell lung cancer metastatic

REACTIONS (2)
  - Metastatic neoplasm [Unknown]
  - Neoplasm progression [Unknown]
